FAERS Safety Report 7650344-5 (Version None)
Quarter: 2011Q3

REPORT INFORMATION
  Report Type: 
  Country: None (occurrence: None)
  Receive Date: 20110802
  Receipt Date: 20110720
  Transmission Date: 20111222
  Serious: Yes (Hospitalization, Disabling, Other)
  Sender: FDA-Public Use
  Company Number: US-ASTRAZENECA-2008UW12256

PATIENT
  Age: 44 Year
  Sex: Male
  Weight: 88.9 kg

DRUGS (17)
  1. PROZAC [Concomitant]
     Dosage: 20 TO 40 MG
     Dates: start: 19920101
  2. PROZAC [Concomitant]
     Dates: start: 20060717
  3. NORVASC [Concomitant]
     Dates: start: 20050626
  4. LEVOTHYROXINE SODIUM [Concomitant]
     Dates: start: 20060306
  5. TRICOR [Concomitant]
     Dates: start: 20050713
  6. ACETAMINOPHEN [Concomitant]
     Indication: PYREXIA
     Dosage: 2 X 325 MG EVERY SIX HOURS AS NEEDED
     Dates: start: 20051125, end: 20051225
  7. COLACE [Concomitant]
     Route: 048
     Dates: start: 20051124
  8. LIBRIUM [Concomitant]
     Route: 048
     Dates: start: 20051124
  9. PROZAC [Concomitant]
     Dates: start: 20050627
  10. AMBIEN [Concomitant]
     Dates: start: 20050615
  11. TRILEPTAL [Concomitant]
     Dates: start: 20050615
  12. HYDROCODONE BITARTRATE AND ACETAMINOPHEN [Concomitant]
     Dosage: 7.5/500 MG
     Dates: start: 20050624
  13. SEROQUEL [Suspect]
     Route: 048
     Dates: start: 20060306
  14. LEVOTHYROXINE SODIUM [Concomitant]
     Dosage: 112 MCG
     Dates: start: 20050731
  15. SEROQUEL [Suspect]
     Indication: BIPOLAR DISORDER
     Dosage: 100 TO 200 MG
     Route: 048
     Dates: start: 20050615, end: 20060504
  16. CITALOPRAM HYDROBROMIDE [Concomitant]
     Dates: start: 20060421
  17. ZOFRAN [Concomitant]
     Dosage: 8 MG Q 8
     Route: 048
     Dates: start: 20051124

REACTIONS (10)
  - ARTHROPATHY [None]
  - HYPERGLYCAEMIA [None]
  - DIABETIC HYPEROSMOLAR COMA [None]
  - TYPE 2 DIABETES MELLITUS [None]
  - OSTEOMYELITIS [None]
  - DIABETIC KETOACIDOSIS [None]
  - BLOOD CHOLESTEROL INCREASED [None]
  - OBESITY [None]
  - DIABETIC COMA [None]
  - HYPERLIPIDAEMIA [None]
